FAERS Safety Report 9866006 (Version 3)
Quarter: 2015Q1

REPORT INFORMATION
  Report Type: Spontaneous
  Country: US (occurrence: US)
  Receive Date: 20140203
  Receipt Date: 20150216
  Transmission Date: 20150721
  Serious: No
  Sender: FDA-Public Use
  Company Number: US-ALLERGAN-1313840US

PATIENT
  Age: 69 Year
  Sex: Female

DRUGS (15)
  1. RESTASIS [Suspect]
     Active Substance: CYCLOSPORINE
     Dosage: 4 GTT, BID
     Route: 047
  2. RESTASIS [Suspect]
     Active Substance: CYCLOSPORINE
     Dosage: 2 UNK, UNK
     Route: 047
  3. REFRESH PM                         /01210201/ [Concomitant]
     Indication: DRY EYE
     Dosage: UNK
  4. CEVIMELINE [Concomitant]
     Active Substance: CEVIMELINE
     Indication: PRODUCT USED FOR UNKNOWN INDICATION
     Dosage: 30 MG, QHS
     Route: 048
  5. RESTASIS [Suspect]
     Active Substance: CYCLOSPORINE
     Indication: DRY EYE
     Dosage: 2 GTT, BID
     Route: 047
     Dates: start: 201308
  6. OMEPRAZOLE. [Concomitant]
     Active Substance: OMEPRAZOLE
     Indication: DRY EYE
     Dosage: 40 MG, QD
     Route: 048
  7. LEVOTHYROXINE [Concomitant]
     Active Substance: LEVOTHYROXINE
     Indication: PRODUCT USED FOR UNKNOWN INDICATION
  8. REFRESH TEARS [Suspect]
     Active Substance: CARBOXYMETHYLCELLULOSE SODIUM
     Indication: DRY EYE
     Dosage: 2 GTT, UNK
     Route: 047
  9. REFRESH EYE ITCH RELIEF [Concomitant]
     Indication: DRY EYE
     Dosage: UNK
     Route: 047
  10. HYDROXYCHLOROQUINE [Concomitant]
     Active Substance: HYDROXYCHLOROQUINE
     Indication: PRODUCT USED FOR UNKNOWN INDICATION
  11. THYROID MEDICATION NOS [Concomitant]
     Indication: PRODUCT USED FOR UNKNOWN INDICATION
     Dosage: UNK
  12. NORTRIPTYLINE [Concomitant]
     Active Substance: NORTRIPTYLINE
     Dosage: UNK UNK, QHS
  13. RESTASIS [Suspect]
     Active Substance: CYCLOSPORINE
     Dosage: 4GTT, BID
     Route: 047
  14. RESTASIS [Suspect]
     Active Substance: CYCLOSPORINE
     Dosage: 2 UNK, UNK
     Route: 047
  15. CRESTOR [Concomitant]
     Active Substance: ROSUVASTATIN CALCIUM
     Indication: PRODUCT USED FOR UNKNOWN INDICATION
     Dosage: UNK

REACTIONS (8)
  - Incorrect dose administered [Unknown]
  - Vision blurred [Unknown]
  - Eye irritation [Unknown]
  - Drug ineffective [Unknown]
  - Skin burning sensation [Unknown]
  - Eye irritation [Unknown]
  - Photophobia [Not Recovered/Not Resolved]
  - Pain of skin [Unknown]

NARRATIVE: CASE EVENT DATE: 20140116
